FAERS Safety Report 6437026-2 (Version None)
Quarter: 2009Q4

REPORT INFORMATION
  Report Type: 
  Country: None (occurrence: None)
  Receive Date: 20091112
  Receipt Date: 20091106
  Transmission Date: 20100525
  Serious: No
  Sender: FDA-Public Use
  Company Number: US-B.I. PHARMACEUTICALS,INC./RIDGEFIELD-2004-BP-11157BP

PATIENT
  Sex: Male

DRUGS (7)
  1. SPIRIVA [Suspect]
     Indication: CHRONIC OBSTRUCTIVE PULMONARY DISEASE
     Dosage: 18 MCG
     Route: 055
     Dates: start: 20040901
  2. SPIRIVA [Suspect]
     Indication: EMPHYSEMA
  3. HYZAAR [Concomitant]
     Indication: HYPERTENSION
  4. ZOCOR [Concomitant]
     Indication: HYPERCHOLESTEROLAEMIA
  5. PROVENTIL-HFA [Concomitant]
     Indication: CHRONIC OBSTRUCTIVE PULMONARY DISEASE
  6. NORVASC [Concomitant]
     Indication: HYPERTENSION
  7. FLOMAX [Concomitant]
     Indication: BENIGN PROSTATIC HYPERPLASIA

REACTIONS (3)
  - DRUG INEFFECTIVE [None]
  - MALAISE [None]
  - SLUGGISHNESS [None]
